FAERS Safety Report 10662725 (Version 6)
Quarter: 2017Q4

REPORT INFORMATION
  Report Type: Spontaneous
  Country: BR (occurrence: BR)
  Receive Date: 20141218
  Receipt Date: 20171127
  Transmission Date: 20180320
  Serious: Yes (Other)
  Sender: FDA-Public Use
  Company Number: BR-JNJFOC-20141207291

PATIENT
  Age: 67 Year
  Sex: Female
  Weight: 77 kg

DRUGS (3)
  1. SIMPONI [Suspect]
     Active Substance: GOLIMUMAB
     Indication: RHEUMATOID ARTHRITIS
     Route: 058
     Dates: start: 20141009
  2. SIMPONI [Suspect]
     Active Substance: GOLIMUMAB
     Indication: RHEUMATOID ARTHRITIS
     Route: 058
  3. METHOTREXATE. [Concomitant]
     Active Substance: METHOTREXATE
     Route: 065

REACTIONS (21)
  - Syncope [Recovered/Resolved]
  - Device malfunction [Unknown]
  - Gastric operation [Unknown]
  - Muscle spasms [Not Recovered/Not Resolved]
  - Hyperglycaemia [Not Recovered/Not Resolved]
  - Intestinal operation [Recovering/Resolving]
  - Pulmonary fibrosis [Not Recovered/Not Resolved]
  - Pneumonia [Recovered/Resolved with Sequelae]
  - Bladder discomfort [Not Recovered/Not Resolved]
  - Back pain [Unknown]
  - Cognitive disorder [Unknown]
  - Infection [Not Recovered/Not Resolved]
  - Flatulence [Not Recovered/Not Resolved]
  - Pain in extremity [Unknown]
  - Bladder disorder [Unknown]
  - Hypersomnia [Recovered/Resolved]
  - Drug dose omission [Unknown]
  - Pollakiuria [Not Recovered/Not Resolved]
  - Musculoskeletal stiffness [Unknown]
  - Bladder diverticulitis [Unknown]
  - Weight increased [Unknown]

NARRATIVE: CASE EVENT DATE: 2014
